FAERS Safety Report 9101743 (Version 1)
Quarter: 2013Q1

REPORT INFORMATION
  Report Type: Spontaneous
  Country: US (occurrence: US)
  Receive Date: 20130218
  Receipt Date: 20130218
  Transmission Date: 20140127
  Serious: No
  Sender: FDA-Public Use
  Company Number: US-BAYER-2013-011195

PATIENT
  Age: 59 Year
  Sex: Female
  Weight: 100 kg

DRUGS (9)
  1. ALEVE CAPLET/TABLET,MIDOL EXTENDED RELIEF CAPLET [Suspect]
     Indication: PROCEDURAL PAIN
     Dosage: 2 DF, BID
     Route: 048
     Dates: start: 20130115, end: 20130115
  2. PERCOCET [Concomitant]
  3. NIACIN [Concomitant]
  4. ALTACE [Concomitant]
  5. CINNAMON [Concomitant]
  6. GLUCOSAMINE W/CHONDROITIN SULFATE [Concomitant]
  7. SHIFFS MEGA RED [Concomitant]
  8. MULTIVITAMIN [Concomitant]
  9. ECOTRIN [Concomitant]
     Dosage: 325 MG, UNK

REACTIONS (4)
  - Abdominal discomfort [Recovered/Resolved]
  - Chest discomfort [Recovered/Resolved]
  - Nausea [Recovered/Resolved]
  - Overdose [None]
